FAERS Safety Report 16723510 (Version 1)
Quarter: 2019Q3

REPORT INFORMATION
  Report Type: Spontaneous
  Country: US (occurrence: US)
  Receive Date: 20190821
  Receipt Date: 20190821
  Transmission Date: 20191005
  Serious: No
  Sender: FDA-Public Use
  Company Number: US-ELI_LILLY_AND_COMPANY-US201908005031

PATIENT
  Sex: Female

DRUGS (2)
  1. HUMULIN R U-500 [Suspect]
     Active Substance: INSULIN HUMAN
     Dosage: 65-80 U, PRN
     Route: 058
  2. HUMULIN R U-500 [Suspect]
     Active Substance: INSULIN HUMAN
     Indication: TYPE 2 DIABETES MELLITUS
     Dosage: 65-80 U, PRN
     Route: 058

REACTIONS (4)
  - Vision blurred [Recovering/Resolving]
  - Eye disorder [Recovering/Resolving]
  - Fat tissue increased [Not Recovered/Not Resolved]
  - Blood glucose increased [Unknown]
